FAERS Safety Report 25618484 (Version 1)
Quarter: 2025Q3

REPORT INFORMATION
  Report Type: Spontaneous
  Country: MY (occurrence: MY)
  Receive Date: 20250729
  Receipt Date: 20250729
  Transmission Date: 20251021
  Serious: Yes (Other)
  Sender: FRESENIUS KABI
  Company Number: MY-FreseniusKabi-FK202510221

PATIENT
  Age: 56 Year
  Sex: Female

DRUGS (1)
  1. ACETAMINOPHEN [Suspect]
     Active Substance: ACETAMINOPHEN
     Indication: Arthralgia
     Dosage: FOA: SOLUTION FOR INFUSION
     Route: 042

REACTIONS (2)
  - Rash [Recovering/Resolving]
  - Dermatitis bullous [Recovering/Resolving]
